FAERS Safety Report 14349005 (Version 6)
Quarter: 2018Q4

REPORT INFORMATION
  Report Type: Report from Study
  Country: US (occurrence: US)
  Receive Date: 20180104
  Receipt Date: 20181031
  Transmission Date: 20190204
  Serious: No
  Sender: FDA-Public Use
  Company Number: US-009507513-1712USA004320

PATIENT
  Age: 21 Year
  Sex: Female
  Weight: 57.6 kg

DRUGS (1)
  1. IMPLANON [Suspect]
     Active Substance: ETONOGESTREL
     Indication: CONTRACEPTION
     Dosage: 1 ROD (68 MG), EVERY 3 YEARS
     Dates: start: 20170626

REACTIONS (5)
  - Product quality issue [Unknown]
  - No adverse event [Unknown]
  - Complication associated with device [Not Recovered/Not Resolved]
  - Product dose omission [Unknown]
  - Device deployment issue [Not Recovered/Not Resolved]

NARRATIVE: CASE EVENT DATE: 2017
